FAERS Safety Report 5943863-0 (Version None)
Quarter: 2008Q4

REPORT INFORMATION
  Report Type: 
  Country: None (occurrence: None)
  Receive Date: 20081106
  Receipt Date: 20081030
  Transmission Date: 20090506
  Serious: Yes (Hospitalization)
  Sender: FDA-Public Use
  Company Number: US-AVENTIS-200817381US

PATIENT
  Sex: Male

DRUGS (15)
  1. LANTUS [Suspect]
     Route: 058
  2. CLINDAMYCIN HCL [Concomitant]
     Dosage: DOSE: UNK
  3. METFORMIN HCL [Concomitant]
     Dosage: DOSE: UNK
  4. AMARYL [Concomitant]
     Dosage: DOSE: UNK
  5. LIPITOR [Concomitant]
     Dosage: DOSE: UNK
  6. TENORMIN [Concomitant]
     Dosage: DOSE: UNK
  7. MULTI-VITAMINS [Concomitant]
     Dosage: DOSE: UNK
  8. ASCORBIC ACID [Concomitant]
     Dosage: DOSE: UNK
  9. VITAMIN E [Concomitant]
     Dosage: DOSE: UNK
  10. VITAMIN B STRESS [Concomitant]
     Dosage: DOSE: UNK
  11. POTASSIUM CHLORIDE [Concomitant]
     Dosage: DOSE: UNK
  12. CALCIUM WITH VITAMIN D             /01233101/ [Concomitant]
     Dosage: DOSE: UNK
  13. GLUCOSAMINE + CHONDROITIN [Concomitant]
     Dosage: DOSE: UNK
  14. ASPIRIN [Concomitant]
  15. MSN [Concomitant]
     Dosage: DOSE: UNK

REACTIONS (4)
  - ABDOMINAL INFECTION [None]
  - BLISTER [None]
  - COGNITIVE DISORDER [None]
  - PAIN OF SKIN [None]
